FAERS Safety Report 6033855-8 (Version None)
Quarter: 2009Q1

REPORT INFORMATION
  Report Type: 
  Country: None (occurrence: None)
  Receive Date: 20090112
  Receipt Date: 20090107
  Transmission Date: 20090719
  Serious: Yes (Other)
  Sender: FDA-Public Use
  Company Number: US-BAYER-200910370NA

PATIENT
  Sex: Male

DRUGS (3)
  1. CIPRO [Suspect]
     Indication: PROSTATIC OPERATION
     Route: 065
     Dates: start: 20080101
  2. CIPRO [Suspect]
     Route: 065
     Dates: start: 20080601
  3. LEVAQUIN [Suspect]

REACTIONS (4)
  - HYPOAESTHESIA [None]
  - MUSCLE SPASTICITY [None]
  - MUSCULAR WEAKNESS [None]
  - NEUROPATHY PERIPHERAL [None]
